FAERS Safety Report 12289357 (Version 1)
Quarter: 2016Q2

REPORT INFORMATION
  Report Type: Spontaneous
  Country: US (occurrence: None)
  Receive Date: 20160420
  Receipt Date: 20160420
  Transmission Date: 20160815
  Serious: No
  Sender: FDA-Public Use
  Company Number: None

PATIENT
  Age: 55 Year
  Sex: Female

DRUGS (1)
  1. RYTARY [Suspect]
     Active Substance: CARBIDOPA\LEVODOPA

REACTIONS (7)
  - Exercise tolerance decreased [None]
  - Sleep apnoea syndrome [None]
  - Glycosylated haemoglobin increased [None]
  - Musculoskeletal disorder [None]
  - Dystonia [None]
  - Migraine [None]
  - Memory impairment [None]
